FAERS Safety Report 9601266 (Version 2)
Quarter: 2014Q1

REPORT INFORMATION
  Report Type: Report from Study
  Country: DO (occurrence: DO)
  Receive Date: 20131006
  Receipt Date: 20140326
  Transmission Date: 20141002
  Serious: Yes (Life-Threatening)
  Sender: FDA-Public Use
  Company Number: PHHO2013DO012651

PATIENT
  Age: 51 Year
  Sex: Male
  Weight: 73.5 kg

DRUGS (3)
  1. PLACEBO [Suspect]
     Indication: TYPE 2 DIABETES MELLITUS
     Dosage: UNK
     Route: 048
     Dates: start: 20130318
  2. COMPARATOR METFORMIN [Suspect]
     Indication: TYPE 2 DIABETES MELLITUS
     Dosage: UNK
     Route: 048
     Dates: start: 20140318
  3. CARBAMAZEPINE [Suspect]
     Indication: DEPRESSION
     Dosage: 200 MG, Q12H
     Dates: start: 20020615

REACTIONS (1)
  - Convulsion [Recovered/Resolved]
